FAERS Safety Report 16063047 (Version 1)
Quarter: 2019Q1

REPORT INFORMATION
  Report Type: Report from Study
  Country: PE (occurrence: PE)
  Receive Date: 20190312
  Receipt Date: 20190312
  Transmission Date: 20190418
  Serious: Yes (Death)
  Sender: FDA-Public Use
  Company Number: PE-INCYTE CORPORATION-2019IN001955

PATIENT

DRUGS (1)
  1. JAKAVI [Suspect]
     Active Substance: RUXOLITINIB
     Indication: MYELOFIBROSIS
     Dosage: 20 MG, BID
     Route: 048
     Dates: start: 20180521

REACTIONS (2)
  - Myelofibrosis [Fatal]
  - General physical health deterioration [Unknown]

NARRATIVE: CASE EVENT DATE: 20190220
